FAERS Safety Report 17358292 (Version 4)
Quarter: 2020Q1

REPORT INFORMATION
  Report Type: Report from Study
  Country: None (occurrence: CO)
  Receive Date: 20200201
  Receipt Date: 20200328
  Transmission Date: 20200409
  Serious: Yes (Hospitalization, Other)
  Sender: FDA-Public Use
  Company Number: CO-ABBVIE-20K-036-3254633-00

PATIENT
  Age: 79 Year
  Sex: Female
  Weight: 60 kg

DRUGS (5)
  1. SERTRALINE [Suspect]
     Active Substance: SERTRALINE HYDROCHLORIDE
     Indication: PRODUCT USED FOR UNKNOWN INDICATION
     Route: 065
  2. HUMIRA [Suspect]
     Active Substance: ADALIMUMAB
     Indication: RHEUMATOID ARTHRITIS
     Route: 058
     Dates: start: 20090820
  3. DOLIDER [Concomitant]
     Indication: PRODUCT USED FOR UNKNOWN INDICATION
     Dates: end: 20200320
  4. ACETAMINOPHEN. [Suspect]
     Active Substance: ACETAMINOPHEN
     Indication: PRODUCT USED FOR UNKNOWN INDICATION
     Route: 065
  5. HUMIRA [Suspect]
     Active Substance: ADALIMUMAB
     Indication: RHEUMATOID ARTHRITIS
     Route: 058
     Dates: end: 20200219

REACTIONS (23)
  - Venous occlusion [Unknown]
  - Dysstasia [Unknown]
  - Asthenia [Recovering/Resolving]
  - Inflammation [Recovering/Resolving]
  - Swelling [Recovering/Resolving]
  - Depression [Recovered/Resolved]
  - Crying [Unknown]
  - Vision blurred [Recovering/Resolving]
  - Synovial cyst [Unknown]
  - Chest pain [Recovering/Resolving]
  - Dizziness [Unknown]
  - Fatigue [Recovering/Resolving]
  - Osteoporosis [Recovering/Resolving]
  - Dyspnoea [Recovering/Resolving]
  - Insomnia [Unknown]
  - Pain in extremity [Unknown]
  - Therapeutic product effect decreased [Unknown]
  - Inflammation [Recovered/Resolved]
  - Arthralgia [Unknown]
  - Back pain [Unknown]
  - Muscle fatigue [Recovering/Resolving]
  - Peripheral swelling [Not Recovered/Not Resolved]
  - Nausea [Unknown]

NARRATIVE: CASE EVENT DATE: 2019
